FAERS Safety Report 23861807 (Version 2)
Quarter: 2024Q2

REPORT INFORMATION
  Report Type: Spontaneous
  Country: US (occurrence: US)
  Receive Date: 20240516
  Receipt Date: 20240517
  Transmission Date: 20240716
  Serious: Yes (Hospitalization)
  Sender: FDA-Public Use
  Company Number: US-TEVA-VS-3197924

PATIENT
  Age: 81 Year
  Sex: Female

DRUGS (3)
  1. ALBUTEROL SULFATE [Suspect]
     Active Substance: ALBUTEROL SULFATE
     Indication: Asthma
     Dosage: 90 MCG/DOSE
     Route: 055
  2. FLOVENT HFA [Concomitant]
     Active Substance: FLUTICASONE PROPIONATE
  3. Albuterol nebules [Concomitant]

REACTIONS (8)
  - Asthma [Unknown]
  - Device issue [Unknown]
  - Feeding disorder [Unknown]
  - Insomnia [Unknown]
  - Loss of personal independence in daily activities [Unknown]
  - Adverse event [Unknown]
  - Gastrooesophageal reflux disease [Unknown]
  - Drug ineffective [Unknown]

NARRATIVE: CASE EVENT DATE: 20240101
